FAERS Safety Report 10550470 (Version 1)
Quarter: 2014Q4

REPORT INFORMATION
  Report Type: Spontaneous
  Country: US (occurrence: US)
  Receive Date: 20141029
  Receipt Date: 20141029
  Transmission Date: 20150529
  Serious: No
  Sender: FDA-Public Use
  Company Number: US-TEVA-480451USA

PATIENT
  Sex: Male
  Weight: 74.91 kg

DRUGS (1)
  1. PROVIGIL [Suspect]
     Active Substance: MODAFINIL
     Indication: FATIGUE
     Route: 048

REACTIONS (2)
  - Headache [Recovered/Resolved]
  - Off label use [Unknown]
